FAERS Safety Report 9882506 (Version 2)
Quarter: 2014Q1

REPORT INFORMATION
  Report Type: Spontaneous
  Country: DE (occurrence: DE)
  Receive Date: 20140207
  Receipt Date: 20140207
  Transmission Date: 20141002
  Serious: Yes (Other)
  Sender: FDA-Public Use
  Company Number: DE-SA-2014SA007985

PATIENT
  Age: 52 Year
  Sex: Female

DRUGS (2)
  1. AUBAGIO [Suspect]
     Indication: MULTIPLE SCLEROSIS
     Route: 048
     Dates: start: 20131115, end: 20131221
  2. MESALAZINE [Concomitant]
     Indication: COLITIS ULCERATIVE

REACTIONS (3)
  - Haematochezia [Unknown]
  - Influenza like illness [Unknown]
  - Oral herpes [Unknown]
